FAERS Safety Report 20543964 (Version 2)
Quarter: 2022Q3

REPORT INFORMATION
  Report Type: Report from Study
  Country: DE (occurrence: DE)
  Receive Date: 20220303
  Receipt Date: 20220808
  Transmission Date: 20221027
  Serious: Yes (Hospitalization)
  Sender: FDA-Public Use
  Company Number: DE-ABBVIE-22K-062-4299650-00

PATIENT
  Age: 52 Year
  Sex: Female

DRUGS (1)
  1. RINVOQ [Suspect]
     Active Substance: UPADACITINIB
     Indication: Rheumatoid arthritis
     Route: 048
     Dates: start: 20210929

REACTIONS (5)
  - Spinal pain [Recovered/Resolved]
  - Arthralgia [Recovered/Resolved]
  - Gastritis [Unknown]
  - Secondary adrenocortical insufficiency [Unknown]
  - Tendon disorder [Unknown]

NARRATIVE: CASE EVENT DATE: 20220104
